FAERS Safety Report 9248646 (Version 1)
Quarter: 2013Q2

REPORT INFORMATION
  Report Type: Report from Study
  Country: AU (occurrence: AU)
  Receive Date: 20130423
  Receipt Date: 20130423
  Transmission Date: 20140414
  Serious: Yes (Other)
  Sender: FDA-Public Use
  Company Number: AU-ROCHE-1168460

PATIENT
  Age: 51 Year
  Sex: Female

DRUGS (8)
  1. TOCILIZUMAB [Suspect]
     Indication: RHEUMATOID ARTHRITIS
     Route: 042
     Dates: start: 20120621, end: 20121115
  2. METHOTREXATE [Concomitant]
     Route: 065
  3. FOLIC ACID [Concomitant]
     Route: 065
  4. NAPROSYN [Concomitant]
     Route: 065
  5. ARAVA [Concomitant]
     Route: 065
  6. INSULIN [Concomitant]
  7. LIPITOR [Concomitant]
  8. CALTRATE [Concomitant]

REACTIONS (3)
  - Fracture [Unknown]
  - Wrist deformity [Unknown]
  - Tonsillitis [Recovered/Resolved]
